FAERS Safety Report 7220596-4 (Version None)
Quarter: 2011Q1

REPORT INFORMATION
  Report Type: 
  Country: None (occurrence: None)
  Receive Date: 20110111
  Receipt Date: 20110104
  Transmission Date: 20110831
  Serious: Yes (Other)
  Sender: FDA-Public Use
  Company Number: US-PFIZER INC-2011001975

PATIENT
  Sex: Female
  Weight: 69.4 kg

DRUGS (8)
  1. QUINAPRIL [Concomitant]
     Dosage: 20 MG, DAILY
  2. ALENDRONATE SODIUM [Concomitant]
     Dosage: 70 MG, WEEKLY
  3. LIPITOR [Suspect]
     Indication: BLOOD CHOLESTEROL INCREASED
     Dosage: 40 MG, 1X/DAY
     Route: 048
     Dates: end: 20110102
  4. DILTIAZEM [Concomitant]
     Dosage: 120 MG, DAILY
  5. HYDROCHLOROTHIAZIDE [Concomitant]
     Dosage: 25 MG, DAILY
  6. LOVAZA [Concomitant]
     Dosage: 1 MG, 4X/DAY
  7. ACETYLSALICYLIC ACID [Concomitant]
     Dosage: 81 MG, DAILY
  8. ZETIA [Concomitant]
     Dosage: 10 MG, DAILY

REACTIONS (2)
  - CARDIAC OPERATION [None]
  - JOINT INJURY [None]
